FAERS Safety Report 23085106 (Version 1)
Quarter: 2023Q4

REPORT INFORMATION
  Report Type: Spontaneous
  Country: US (occurrence: None)
  Receive Date: 20231019
  Receipt Date: 20231019
  Transmission Date: 20240109
  Serious: Yes (Hospitalization)
  Sender: FDA-Public Use
  Company Number: None

PATIENT
  Age: 67 Year
  Sex: Male
  Weight: 88 kg

DRUGS (1)
  1. APIXABAN [Suspect]
     Active Substance: APIXABAN
     Dates: start: 20220412, end: 20230210

REACTIONS (8)
  - Cerebrovascular accident [None]
  - Asthma [None]
  - Haematuria [None]
  - Catheter site injury [None]
  - Superficial vein thrombosis [None]
  - Deep vein thrombosis [None]
  - Therapy cessation [None]
  - Thrombosis [None]

NARRATIVE: CASE EVENT DATE: 20230210
